FAERS Safety Report 21721247 (Version 2)
Quarter: 2022Q4

REPORT INFORMATION
  Report Type: Spontaneous
  Country: US (occurrence: US)
  Receive Date: 20221213
  Receipt Date: 20221215
  Transmission Date: 20230112
  Serious: No
  Sender: FDA-Public Use
  Company Number: US-SANOFI-01399764

PATIENT
  Age: 61 Year
  Sex: Male

DRUGS (15)
  1. DUPIXENT [Suspect]
     Active Substance: DUPILUMAB
     Indication: Dermatitis atopic
     Dosage: 300 MG PRN AND DRUG TREATMENT DURATION:SINCE 3 OR 4 YEARS
  2. DUPIXENT [Suspect]
     Active Substance: DUPILUMAB
     Dosage: 300MG QOW
  3. DUPIXENT [Suspect]
     Active Substance: DUPILUMAB
     Dosage: 300MG Q3W
  4. DUPIXENT [Suspect]
     Active Substance: DUPILUMAB
     Dosage: 300MG Q4W
  5. APEXICON [Concomitant]
     Active Substance: DIFLORASONE DIACETATE
  6. CLOBETASOL PROPIONATE [Concomitant]
     Active Substance: CLOBETASOL PROPIONATE
  7. FLUOCINOLONE ACETONIDE [Concomitant]
     Active Substance: FLUOCINOLONE ACETONIDE
  8. LIPITOR [Concomitant]
     Active Substance: ATORVASTATIN CALCIUM
  9. LOCOID LIPOCREAM [Concomitant]
     Active Substance: HYDROCORTISONE BUTYRATE
  10. MOMETASONE FUROATE [Concomitant]
     Active Substance: MOMETASONE FUROATE
  11. NORVASC [Concomitant]
     Active Substance: AMLODIPINE BESYLATE
  12. OXICONAZOLE NITRATE [Concomitant]
     Active Substance: OXICONAZOLE NITRATE
  13. PROVOCHOLINE [Concomitant]
     Active Substance: METHACHOLINE CHLORIDE
  14. TRIAMCINOLONE ACETONIDE [Concomitant]
     Active Substance: TRIAMCINOLONE ACETONIDE
  15. VALTREX [Concomitant]
     Active Substance: VALACYCLOVIR HYDROCHLORIDE

REACTIONS (1)
  - Intentional product misuse [Unknown]
